FAERS Safety Report 14112348 (Version 1)
Quarter: 2017Q4

REPORT INFORMATION
  Report Type: Report from Study
  Country: BR (occurrence: BR)
  Receive Date: 20171020
  Receipt Date: 20171020
  Transmission Date: 20180321
  Serious: Yes (Other)
  Sender: FDA-Public Use
  Company Number: BR-ELI_LILLY_AND_COMPANY-BR201710008332

PATIENT
  Age: 61 Year
  Sex: Female

DRUGS (9)
  1. CETUXIMAB. [Suspect]
     Active Substance: CETUXIMAB
     Indication: METASTASES TO LIVER
  2. IRINOTECAN [Concomitant]
     Active Substance: IRINOTECAN
     Indication: GASTROINTESTINAL CARCINOMA
     Dosage: UNK UNK, 2/M
  3. 5 FU [Concomitant]
     Active Substance: FLUOROURACIL
     Indication: METASTASES TO LIVER
  4. CETUXIMAB. [Suspect]
     Active Substance: CETUXIMAB
     Indication: METASTASES TO LUNG
  5. CETUXIMAB. [Suspect]
     Active Substance: CETUXIMAB
     Indication: GASTROINTESTINAL CARCINOMA
     Dosage: UNK UNK, WEEKLY (1/W)
     Route: 042
  6. IRINOTECAN [Concomitant]
     Active Substance: IRINOTECAN
     Indication: METASTASES TO LIVER
  7. 5 FU [Concomitant]
     Active Substance: FLUOROURACIL
     Indication: GASTROINTESTINAL CARCINOMA
     Dosage: UNK UNK, 2/M
  8. 5 FU [Concomitant]
     Active Substance: FLUOROURACIL
     Indication: METASTASES TO LUNG
  9. IRINOTECAN [Concomitant]
     Active Substance: IRINOTECAN
     Indication: METASTASES TO LUNG

REACTIONS (1)
  - Weight decreased [Unknown]

NARRATIVE: CASE EVENT DATE: 2017
